FAERS Safety Report 5053435-0 (Version None)
Quarter: 2006Q2

REPORT INFORMATION
  Report Type: 
  Country: None (occurrence: None)
  Receive Date: 20060614
  Receipt Date: 20060501
  Transmission Date: 20061013
  Serious: Yes (Hospitalization)
  Sender: FDA-Public Use
  Company Number: 446599

PATIENT
  Sex: Female

DRUGS (7)
  1. BONIVA [Suspect]
     Indication: OSTEOPOROSIS
     Dosage: 150 MG 1 PER MONTH ORAL
     Route: 048
     Dates: start: 20050615
  2. PREVACID [Concomitant]
  3. UNSPECIFIED DRUG (GENERIC UNKNOWN) [Concomitant]
  4. PROCARDIA XL [Concomitant]
  5. UNSPECIFIED DRUG (GENERIC UNKNOWN) [Concomitant]
  6. UNSPECIFIED DRUG (GENERIC UNKNOWN) [Concomitant]
  7. TRICOR [Concomitant]

REACTIONS (3)
  - ARTHRITIS [None]
  - HEART RATE IRREGULAR [None]
  - HIP ARTHROPLASTY [None]
